FAERS Safety Report 23710334 (Version 1)
Quarter: 2024Q2

REPORT INFORMATION
  Report Type: Spontaneous
  Country: FR (occurrence: FR)
  Receive Date: 20240405
  Receipt Date: 20240405
  Transmission Date: 20240716
  Serious: Yes (Hospitalization)
  Sender: FDA-Public Use
  Company Number: FR-SUN PHARMACEUTICAL INDUSTRIES LTD-2024RR-440813

PATIENT
  Age: 31 Year
  Sex: Female

DRUGS (4)
  1. GANIRELIX ACETATE [Suspect]
     Active Substance: GANIRELIX ACETATE
     Indication: In vitro fertilisation
     Dosage: 1 DOSAGE FORM, DAILY
     Route: 058
     Dates: start: 20230519
  2. GONAL-F [Suspect]
     Active Substance: FOLLITROPIN
     Indication: In vitro fertilisation
     Dosage: 1 DOSAGE FORM, DAILY
     Route: 058
     Dates: start: 20230514
  3. CHORIOGONADOTROPIN ALFA [Suspect]
     Active Substance: CHORIOGONADOTROPIN ALFA
     Indication: In vitro fertilisation
     Dosage: 1 DOSAGE FORM, DAILY
     Route: 058
     Dates: start: 20230523
  4. TRIPTORELIN [Suspect]
     Active Substance: TRIPTORELIN
     Indication: In vitro fertilisation
     Dosage: 2 DOSAGE FORM, DAILY
     Route: 058
     Dates: start: 20230523

REACTIONS (3)
  - Abdominal pain [Recovered/Resolved]
  - Dyspnoea [Recovered/Resolved]
  - Ovarian hyperstimulation syndrome [Recovered/Resolved]

NARRATIVE: CASE EVENT DATE: 20230531
